FAERS Safety Report 5387806-X (Version None)
Quarter: 2007Q3

REPORT INFORMATION
  Report Type: 
  Country: None (occurrence: None)
  Receive Date: 20070716
  Receipt Date: 20060615
  Transmission Date: 20080115
  Serious: No
  Sender: FDA-Public Use
  Company Number: A0608968A

PATIENT
  Age: 49 Year
  Sex: Male

DRUGS (1)
  1. NICORETTE [Suspect]
     Dates: start: 20060519, end: 20060519

REACTIONS (4)
  - ABDOMINAL PAIN UPPER [None]
  - DIARRHOEA [None]
  - EATING DISORDER [None]
  - MALAISE [None]
